FAERS Safety Report 9162060 (Version 4)
Quarter: 2013Q3

REPORT INFORMATION
  Report Type: Spontaneous
  Country: US (occurrence: None)
  Receive Date: 20120817
  Receipt Date: 20130815
  Transmission Date: 20140515
  Serious: Yes (Other)
  Sender: FDA-Public Use
  Company Number: ADR-2012-00375

PATIENT
  Sex: Male

DRUGS (5)
  1. BACLOFEN INTRATHECAL(BACLOFEN INJECTION) [Suspect]
     Indication: PAIN
     Dosage: UNK
  2. BACLOFEN INTRATHECAL(BACLOFEN INJECTION) [Suspect]
     Indication: POST LAMINECTOMY SYNDROME
     Dosage: UNK
  3. MORPHINE [Concomitant]
  4. CLONIDINE [Concomitant]
  5. PRIALT [Concomitant]

REACTIONS (32)
  - Drug ineffective [None]
  - Granuloma [None]
  - Catheter site related reaction [None]
  - Headache [None]
  - Headache [None]
  - Confusional state [None]
  - Amnesia [None]
  - Thinking abnormal [None]
  - Pollakiuria [None]
  - Balance disorder [None]
  - Gait disturbance [None]
  - Normal pressure hydrocephalus [None]
  - Constipation [None]
  - Visual acuity reduced [None]
  - Nausea [None]
  - Insomnia [None]
  - Anxiety [None]
  - Blood pressure increased [None]
  - Dementia [None]
  - Heart rate abnormal [None]
  - Catheter site pain [None]
  - Nerve compression [None]
  - Confusional state [None]
  - Infusion site mass [None]
  - Mental status changes [None]
  - No therapeutic response [None]
  - Pain [None]
  - Pollakiuria [None]
  - Post lumbar puncture syndrome [None]
  - Infusion site pain [None]
  - Nerve root compression [None]
  - Feeling drunk [None]
